FAERS Safety Report 5493362-8 (Version None)
Quarter: 2007Q4

REPORT INFORMATION
  Report Type: 
  Country: None (occurrence: None)
  Receive Date: 20071023
  Receipt Date: 20071012
  Transmission Date: 20080405
  Serious: Yes (Disabling)
  Sender: FDA-Public Use
  Company Number: US-MERCK-0710USA02867

PATIENT
  Age: 75 Year
  Sex: Female

DRUGS (1)
  1. VYTORIN [Suspect]
     Indication: BLOOD CHOLESTEROL
     Route: 048
     Dates: start: 20070305, end: 20070601

REACTIONS (15)
  - ANOREXIA [None]
  - ASTHENIA [None]
  - CONSTIPATION [None]
  - CUTIS LAXA [None]
  - DEPRESSION [None]
  - FATIGUE [None]
  - GAIT DISTURBANCE [None]
  - HYPOTONIA [None]
  - INSOMNIA [None]
  - MUSCLE ATROPHY [None]
  - MUSCLE INJURY [None]
  - MUSCULOSKELETAL STIFFNESS [None]
  - MYALGIA [None]
  - TENDONITIS [None]
  - WEIGHT DECREASED [None]
